FAERS Safety Report 9550197 (Version 2)
Quarter: 2013Q3

REPORT INFORMATION
  Report Type: Report from Study
  Country: EG (occurrence: EG)
  Receive Date: 20130924
  Receipt Date: 20130926
  Transmission Date: 20140515
  Serious: Yes (Other)
  Sender: FDA-Public Use
  Company Number: EG-ROCHE-1279680

PATIENT
  Age: 33 Year
  Sex: Male
  Weight: 84 kg

DRUGS (7)
  1. PEGASYS [Suspect]
     Indication: CHRONIC HEPATITIS C
     Route: 058
     Dates: start: 20130801, end: 20130910
  2. RIBAVIRIN [Suspect]
     Indication: CHRONIC HEPATITIS C
     Route: 048
     Dates: start: 20130801, end: 20130910
  3. NORVASC [Concomitant]
     Indication: HYPERTENSION
     Route: 048
  4. CONTROLOC (BOSNIA AND HERZEGOVINA) [Concomitant]
     Indication: GASTROOESOPHAGEAL REFLUX DISEASE
     Route: 048
  5. FOLIC ACID [Concomitant]
     Dosage: ONE TAB
     Route: 065
  6. NEORAL [Concomitant]
     Route: 048
     Dates: start: 2011
  7. TAREG [Concomitant]
     Indication: HYPERTENSION
     Route: 048

REACTIONS (3)
  - Thrombocytopenia [Not Recovered/Not Resolved]
  - Leukopenia [Not Recovered/Not Resolved]
  - Anaemia [Not Recovered/Not Resolved]
